FAERS Safety Report 16357513 (Version 3)
Quarter: 2020Q1

REPORT INFORMATION
  Report Type: Report from Study
  Country: None (occurrence: FR)
  Receive Date: 20190527
  Receipt Date: 20200108
  Transmission Date: 20200409
  Serious: Yes (Disabling, Other)
  Sender: FDA-Public Use
  Company Number: FR-ABBVIE-19S-056-2798365-00

PATIENT
  Age: 75 Year
  Sex: Male

DRUGS (2)
  1. DUODOPA [Suspect]
     Active Substance: CARBIDOPA\LEVODOPA
     Dosage: CONTIUNOUS FLOW RATE INCREASE
     Route: 050
     Dates: start: 201907
  2. DUODOPA [Suspect]
     Active Substance: CARBIDOPA\LEVODOPA
     Indication: PARKINSON^S DISEASE
     Dosage: MD : 7 ML ED : 3 ML  FLOW RATE DURING THE DAY: 2.5 ML/H FROM 07:00 AM TO 09:00 PM
     Route: 050
     Dates: start: 20171120, end: 201907

REACTIONS (6)
  - Cataract [Unknown]
  - Dysstasia [Unknown]
  - Mobility decreased [Unknown]
  - Fall [Unknown]
  - Age-related macular degeneration [Unknown]
  - Glaucoma [Unknown]

NARRATIVE: CASE EVENT DATE: 2019
